FAERS Safety Report 5620330-5 (Version None)
Quarter: 2008Q1

REPORT INFORMATION
  Report Type: 
  Country: None (occurrence: None)
  Receive Date: 20080208
  Receipt Date: 20080130
  Transmission Date: 20080703
  Serious: Yes (Death)
  Sender: FDA-Public Use
  Company Number: DK-ELI_LILLY_AND_COMPANY-DK200712001186

PATIENT
  Sex: Male

DRUGS (2)
  1. TERIPARATIDE [Suspect]
     Indication: OSTEOPOROSIS
     Dosage: 20 , UNK
     Route: 058
     Dates: start: 20071114
  2. TEGRETOL [Concomitant]
     Indication: EPILEPSY
     Dosage: 200 MG, 2/D
     Dates: start: 19890101

REACTIONS (4)
  - DIZZINESS [None]
  - HEADACHE [None]
  - OVERDOSE [None]
  - ROAD TRAFFIC ACCIDENT [None]
